FAERS Safety Report 18860640 (Version 2)
Quarter: 2021Q1

REPORT INFORMATION
  Report Type: Spontaneous
  Country: US (occurrence: US)
  Receive Date: 20210208
  Receipt Date: 20210212
  Transmission Date: 20210420
  Serious: Yes (Other)
  Sender: FDA-Public Use
  Company Number: US-009507513-2102USA002155

PATIENT
  Age: 30 Year
  Sex: Female
  Weight: 69.39 kg

DRUGS (1)
  1. NEXPLANON [Suspect]
     Active Substance: ETONOGESTREL
     Dosage: 68 MG
     Route: 059
     Dates: start: 2018

REACTIONS (3)
  - Device dislocation [Not Recovered/Not Resolved]
  - No adverse event [Unknown]
  - Complication associated with device [Not Recovered/Not Resolved]

NARRATIVE: CASE EVENT DATE: 20210118
